FAERS Safety Report 16285719 (Version 1)
Quarter: 2019Q2

REPORT INFORMATION
  Report Type: Spontaneous
  Country: US (occurrence: US)
  Receive Date: 20190402
  Receipt Date: 20190402
  Transmission Date: 20190711
  Serious: Yes (Hospitalization)
  Sender: FDA-Public Use
  Company Number: None

PATIENT
  Age: 52 Year
  Sex: Female
  Weight: 285 kg

DRUGS (2)
  1. CEFAZOLIN [Suspect]
     Active Substance: CEFAZOLIN
     Indication: STAPHYLOCOCCAL INFECTION
     Dosage: ?          OTHER DOSE:2G/20 ML SYRINGE;?
     Route: 042
     Dates: start: 20180731, end: 20180812
  2. CEFAZOLIN [Suspect]
     Active Substance: CEFAZOLIN
     Indication: LOCALISED INFECTION
     Dosage: ?          OTHER DOSE:2G/20 ML SYRINGE;?
     Route: 042
     Dates: start: 20180731, end: 20180812

REACTIONS (2)
  - Pruritus [None]
  - Urticaria [None]

NARRATIVE: CASE EVENT DATE: 20180810
